FAERS Safety Report 9297187 (Version 1)
Quarter: 2013Q2

REPORT INFORMATION
  Report Type: Spontaneous
  Country: US (occurrence: None)
  Receive Date: 20130517
  Receipt Date: 20130517
  Transmission Date: 20140414
  Serious: Yes (Death)
  Sender: FDA-Public Use
  Company Number: None

PATIENT
  Age: 76 Year
  Sex: Female
  Weight: 42.64 kg

DRUGS (8)
  1. ERLOTINIB [Suspect]
     Indication: NON-SMALL CELL LUNG CANCER
     Route: 048
     Dates: start: 20120803
  2. ZOSYN [Concomitant]
  3. VANCOMYCIN [Concomitant]
  4. NYSTATIN POWDER [Concomitant]
  5. NYSTATIN MOUTHWASH [Concomitant]
  6. KETOCONAZOLE CREAM [Concomitant]
  7. LYRICA [Concomitant]
  8. SEROQUEL [Concomitant]

REACTIONS (14)
  - Back pain [None]
  - Respiratory failure [None]
  - Non-small cell lung cancer metastatic [None]
  - Malignant neoplasm progression [None]
  - Gait disturbance [None]
  - Urinary retention [None]
  - Somnolence [None]
  - Hypotension [None]
  - Cardio-respiratory arrest [None]
  - Staphylococcal bacteraemia [None]
  - Leukocytosis [None]
  - Malaise [None]
  - Klebsiella test positive [None]
  - Tachycardia [None]
